FAERS Safety Report 6214476-0 (Version None)
Quarter: 2009Q2

REPORT INFORMATION
  Report Type: 
  Country: None (occurrence: None)
  Receive Date: 20090604
  Receipt Date: 20090529
  Transmission Date: 20091009
  Serious: Yes (Hospitalization)
  Sender: FDA-Public Use
  Company Number: US-ALLERGAN-0905711US

PATIENT
  Age: 86 Year
  Sex: Female

DRUGS (5)
  1. REFRESH PLUS [Suspect]
     Indication: DRY EYE
     Dosage: 1 GTT, TID
     Route: 047
     Dates: start: 20090416, end: 20090421
  2. CELLUVISC [Suspect]
     Indication: DRY EYE
     Dosage: 1 GTT, QHS
     Route: 047
     Dates: start: 20090416, end: 20090421
  3. LIPITOR [Concomitant]
     Indication: BLOOD CHOLESTEROL INCREASED
     Dosage: UNK, QHS
     Route: 048
  4. ARICEPT [Concomitant]
     Indication: DEMENTIA
  5. ASPIRIN [Concomitant]
     Indication: PROPHYLAXIS

REACTIONS (4)
  - ANXIETY [None]
  - BLOOD PRESSURE INCREASED [None]
  - EYE IRRITATION [None]
  - VISION BLURRED [None]
